FAERS Safety Report 4416566-1 (Version None)
Quarter: 2004Q3

REPORT INFORMATION
  Report Type: 
  Country: None (occurrence: None)
  Receive Date: 20040802
  Receipt Date: 20040720
  Transmission Date: 20050211
  Serious: Yes (Death, Hospitalization)
  Sender: FDA-Public Use
  Company Number: DE-JNJFOC-20040705322

PATIENT
  Age: 64 Year
  Sex: Male

DRUGS (4)
  1. REMICADE [Suspect]
     Indication: ANKYLOSING SPONDYLITIS
     Dosage: 300 MG, INTRAVENOUS
     Route: 042
     Dates: start: 20040617
  2. DICLOFENAC (DICLOFENAC) [Suspect]
     Indication: DRUG USE FOR UNKNOWN INDICATION
     Dosage: 50 MG, 3 IN 1 DAY
  3. ACETYLSALICYLIC ACID SRT [Suspect]
     Indication: DRUG USE FOR UNKNOWN INDICATION
     Dosage: 100 MG, 1 IN 1 DAY
  4. PRAVASTATIN SODIUM [Concomitant]

REACTIONS (6)
  - ANAEMIA [None]
  - DUODENAL ULCER HAEMORRHAGE [None]
  - HYPOTENSION [None]
  - NAUSEA [None]
  - VENTRICULAR FIBRILLATION [None]
  - VERTIGO [None]
